FAERS Safety Report 6023974-4 (Version None)
Quarter: 2008Q4

REPORT INFORMATION
  Report Type: 
  Country: None (occurrence: None)
  Receive Date: 20081230
  Receipt Date: 20081210
  Transmission Date: 20090506
  Serious: No
  Sender: FDA-Public Use
  Company Number: US-B.I. PHARMACEUTICALS,INC./RIDGEFIELD-2008-BP-18532BP

PATIENT
  Sex: Female

DRUGS (5)
  1. SPIRIVA [Suspect]
     Indication: CHRONIC OBSTRUCTIVE PULMONARY DISEASE
     Dosage: 18MCG
     Route: 055
     Dates: start: 20081023
  2. SPIRIVA [Suspect]
     Indication: ASTHMA
  3. ADVAIR DISKUS 250/50 [Concomitant]
     Indication: ASTHMA
     Dates: start: 20081001
  4. ADVAIR DISKUS 250/50 [Concomitant]
     Indication: CHRONIC OBSTRUCTIVE PULMONARY DISEASE
  5. PROTONIX [Concomitant]
     Indication: GASTROOESOPHAGEAL REFLUX DISEASE

REACTIONS (6)
  - DYSPHONIA [None]
  - FEELING ABNORMAL [None]
  - HEART RATE INCREASED [None]
  - MICTURITION URGENCY [None]
  - URINARY INCONTINENCE [None]
  - URINARY TRACT INFECTION [None]
